FAERS Safety Report 16561589 (Version 1)
Quarter: 2019Q3

REPORT INFORMATION
  Report Type: Spontaneous
  Country: CH (occurrence: CH)
  Receive Date: 20190711
  Receipt Date: 20190711
  Transmission Date: 20191004
  Serious: Yes (Other)
  Sender: FDA-Public Use
  Company Number: CH-009507513-1907CHE001893

PATIENT
  Sex: Female

DRUGS (15)
  1. TORSEMIDE. [Suspect]
     Active Substance: TORSEMIDE
     Dosage: 20 MILLIGRAMS DAILY
     Route: 048
     Dates: start: 201808
  2. FLATULEX TABLETS [Concomitant]
     Dosage: UNK
     Dates: start: 201901
  3. FLECTOR EP [Concomitant]
     Active Substance: DICLOFENAC EPOLAMINE
     Dosage: AS NECESSARY
     Dates: start: 20190607
  4. VENLAFAXINE HYDROCHLORIDE. [Suspect]
     Active Substance: VENLAFAXINE HYDROCHLORIDE
     Dosage: 150 MILLIGRAMS DAILY
     Route: 048
     Dates: start: 201811
  5. DIOVAN [Suspect]
     Active Substance: VALSARTAN
     Dosage: 80 MILLIGRAMS DAILY
     Route: 048
     Dates: start: 201805
  6. MAGNESIUM ASPARTATE [Concomitant]
     Active Substance: MAGNESIUM ASPARTATE
     Dates: start: 20190618, end: 20190625
  7. DAFALGAN [Suspect]
     Active Substance: ACETAMINOPHEN
     Dosage: MAX 3X/D, REGULAR INTAKE ,0.5 GRAMS AS NECESSARY
     Route: 048
     Dates: start: 201901
  8. LAXOBERON [Concomitant]
     Active Substance: SODIUM PICOSULFATE
     Dosage: UNK
     Dates: start: 201811
  9. METAMUCIL [Concomitant]
     Active Substance: PLANTAGO SEED
     Dosage: UNK
     Dates: start: 20190614
  10. CHOLECALCIFEROL [Concomitant]
     Active Substance: CHOLECALCIFEROL
     Dosage: UNK
     Dates: start: 201808
  11. TEMGESIC [Concomitant]
     Active Substance: BUPRENORPHINE HYDROCHLORIDE
     Dosage: AS NECESSARY
     Dates: start: 201901
  12. REMERON [Suspect]
     Active Substance: MIRTAZAPINE
     Dosage: 30 MILLIGRAMS DAILY
     Route: 048
     Dates: start: 201811
  13. NEXIUM [Suspect]
     Active Substance: ESOMEPRAZOLE MAGNESIUM
     Dosage: 20 MILLIGRAMS DAILY
     Route: 048
     Dates: start: 201806
  14. TEMESTA (LORAZEPAM) [Suspect]
     Active Substance: LORAZEPAM
     Dosage: 0.5 MILLIGRAMS DAILY
     Route: 048
     Dates: start: 201901
  15. TEMESTA (LORAZEPAM) [Suspect]
     Active Substance: LORAZEPAM
     Dosage: 0.5 MILLIGRAMS AS NECESSARY
     Route: 048
     Dates: start: 201901

REACTIONS (2)
  - Cholestatic liver injury [Not Recovered/Not Resolved]
  - Liver function test abnormal [Not Recovered/Not Resolved]

NARRATIVE: CASE EVENT DATE: 201807
